FAERS Safety Report 10608244 (Version 1)
Quarter: 2014Q4

REPORT INFORMATION
  Report Type: Spontaneous
  Country: US (occurrence: US)
  Receive Date: 20141125
  Receipt Date: 20141125
  Transmission Date: 20150529
  Serious: Yes (Life-Threatening, Hospitalization, Other)
  Sender: FDA-Public Use
  Company Number: US-ALKERMES INC.-ALK-2014-003842

PATIENT

DRUGS (2)
  1. VIVITROL [Suspect]
     Active Substance: NALTREXONE
     Indication: ALCOHOLISM
     Dosage: 380 MG, UNK
     Route: 030
  2. METHADONE [Concomitant]
     Active Substance: METHADONE HYDROCHLORIDE
     Indication: PAIN
     Dosage: 30 MG, TID

REACTIONS (8)
  - Loss of consciousness [Unknown]
  - Nervous system disorder [Unknown]
  - Drug withdrawal syndrome [Unknown]
  - Drug administration error [Unknown]
  - Aspiration [Unknown]
  - Seizure [Unknown]
  - Coma [Unknown]
  - Unresponsive to stimuli [Unknown]
